FAERS Safety Report 10082379 (Version 1)
Quarter: 2014Q2

REPORT INFORMATION
  Report Type: Spontaneous
  Country: US (occurrence: None)
  Receive Date: 20140415
  Receipt Date: 20140415
  Transmission Date: 20141212
  Serious: Yes (Other)
  Sender: FDA-Public Use
  Company Number: None

PATIENT
  Age: 31 Year
  Sex: Male

DRUGS (7)
  1. FINASTERIDE 5MG [Suspect]
     Indication: ALOPECIA
     Dosage: 5MG, TAKE 1/4 OF A PILL, 1X DAY, MOUTH - ORAL
     Route: 048
     Dates: start: 20121001, end: 20130703
  2. ADVAIR 250/25 [Concomitant]
  3. PROAIR [Concomitant]
  4. LAMICTAL [Concomitant]
  5. HYDROCODONE [Concomitant]
  6. DIAZAPAM 10MG [Concomitant]
  7. ZINC [Concomitant]

REACTIONS (12)
  - Anxiety [None]
  - Insomnia [None]
  - Gynaecomastia [None]
  - Muscle atrophy [None]
  - Exercise tolerance decreased [None]
  - Skin atrophy [None]
  - Weight increased [None]
  - Weight decreased [None]
  - Fat redistribution [None]
  - Penile curvature [None]
  - Penile size reduced [None]
  - Depression [None]
